FAERS Safety Report 14147238 (Version 3)
Quarter: 2018Q1

REPORT INFORMATION
  Report Type: Spontaneous
  Country: IT (occurrence: IT)
  Receive Date: 20171031
  Receipt Date: 20180301
  Transmission Date: 20180508
  Serious: Yes (Other)
  Sender: FDA-Public Use
  Company Number: IT-MYLANLABS-2017M1067622

PATIENT
  Age: 84 Year
  Sex: Male

DRUGS (5)
  1. RAMIPRIL. [Suspect]
     Active Substance: RAMIPRIL
     Indication: RENAL FAILURE
     Dosage: 2.5 MG, QD
     Dates: start: 20171007, end: 20171009
  2. CARDIRENE [Concomitant]
     Active Substance: ASPIRIN DL-LYSINE
     Indication: THROMBOSIS
     Dosage: 1 DF
     Route: 048
  3. ALIFLUS [Concomitant]
     Active Substance: FLUTICASONE PROPIONATE\SALMETEROL XINAFOATE
     Indication: ASTHMA
     Dosage: 1 DF
     Route: 055
  4. LASIX [Concomitant]
     Active Substance: FUROSEMIDE
     Indication: HYPERTENSION
     Dosage: 1 DF
     Route: 048
  5. CALCITRIOL. [Concomitant]
     Active Substance: CALCITRIOL
     Indication: RENAL FAILURE
     Dosage: 1 DF
     Route: 048

REACTIONS (2)
  - Tongue oedema [Recovering/Resolving]
  - Laryngeal oedema [Recovering/Resolving]

NARRATIVE: CASE EVENT DATE: 20171009
